FAERS Safety Report 8613568-6 (Version None)
Quarter: 2012Q3

REPORT INFORMATION
  Report Type: 
  Country: None (occurrence: None)
  Receive Date: 20120823
  Receipt Date: 20120808
  Transmission Date: 20120928
  Serious: Yes (Death, Other)
  Sender: FDA-Public Use
  Company Number: FR-009507513-1208FRA005478

PATIENT

DRUGS (16)
  1. EMEND [Suspect]
     Dosage: 125 MG, ONCE
     Route: 048
     Dates: start: 20120221, end: 20120221
  2. ONDANSETRON [Suspect]
     Dosage: 8 MG, ONCE
     Route: 042
     Dates: start: 20120221, end: 20120221
  3. BICNU [Concomitant]
     Dosage: 600 MG, ONCE
     Route: 042
     Dates: start: 20120221, end: 20120221
  4. DIAMICRON [Concomitant]
     Dosage: 30 MG, UNK
  5. CYTARABINE [Suspect]
     Dosage: 200 MG, ONCE
     Route: 042
     Dates: start: 20120222, end: 20120222
  6. ETOPOSIDE [Suspect]
     Dosage: 200 MG, ONCE
     Route: 042
     Dates: start: 20120222, end: 20120222
  7. PRAVASTATIN SODIUM [Concomitant]
     Dosage: 10 MG, UNK
     Route: 048
  8. EMEND [Suspect]
     Dosage: 80 MG, ONCE
     Route: 048
     Dates: start: 20120222, end: 20120222
  9. ONDANSETRON [Suspect]
     Dosage: 8 MG, ONCE
     Route: 042
     Dates: start: 20120222, end: 20120222
  10. AMLODIPINE [Concomitant]
     Dosage: 5 MG, UNK
     Route: 048
  11. VALIUM [Concomitant]
     Route: 048
  12. NEXIUM [Concomitant]
     Dosage: 40 MG, UNK
     Route: 048
  13. TRAMADOL HCL [Concomitant]
     Dosage: 50 MG, UNK
     Route: 048
  14. METHYLPREDNISOLONE [Suspect]
     Dosage: 160 MG, ONCE
     Route: 042
     Dates: start: 20120222, end: 20120222
  15. METHYLPREDNISOLONE [Suspect]
     Dosage: 60 MG, ONCE
     Route: 042
     Dates: start: 20120221, end: 20120221
  16. ACETAMINOPHEN [Concomitant]
     Dosage: 1 G, PRN

REACTIONS (1)
  - CARDIO-RESPIRATORY ARREST [None]
